FAERS Safety Report 6733753-8 (Version None)
Quarter: 2010Q2

REPORT INFORMATION
  Report Type: 
  Country: None (occurrence: None)
  Receive Date: 20100520
  Receipt Date: 20100512
  Transmission Date: 20101027
  Serious: Yes (Other)
  Sender: FDA-Public Use
  Company Number: PHHY2010CA28997

PATIENT
  Sex: Female

DRUGS (4)
  1. TOBI [Suspect]
     Indication: BACTERIAL DISEASE CARRIER
     Dosage: 300 MG, BID
     Dates: start: 20070803, end: 20100401
  2. TOBI [Suspect]
     Indication: CYSTIC FIBROSIS
  3. PULMOZYME [Concomitant]
     Dosage: 2.5 MG, QD
  4. SYMBICORT [Concomitant]
     Dosage: 200/6 BID

REACTIONS (6)
  - COUGH [None]
  - DRUG INTOLERANCE [None]
  - DYSPNOEA [None]
  - HAEMOPTYSIS [None]
  - LUNG DISORDER [None]
  - WHEEZING [None]
